FAERS Safety Report 15768938 (Version 1)
Quarter: 2018Q4

REPORT INFORMATION
  Report Type: Spontaneous
  Country: FR (occurrence: FR)
  Receive Date: 20181228
  Receipt Date: 20181228
  Transmission Date: 20190205
  Serious: Yes (Hospitalization)
  Sender: FDA-Public Use
  Company Number: FR-TEVA-2018-FR-992152

PATIENT
  Age: 87 Year
  Sex: Male
  Weight: 70 kg

DRUGS (2)
  1. BISOPROLOL (FUMARATE ACIDE DE) [Suspect]
     Active Substance: BISOPROLOL FUMARATE
     Route: 065
  2. PREVISCAN 20 MG, COMPRIM? S?CABLE [Suspect]
     Active Substance: FLUINDIONE
     Route: 048
     Dates: end: 20181123

REACTIONS (1)
  - Nephropathy [Not Recovered/Not Resolved]

NARRATIVE: CASE EVENT DATE: 20181122
